FAERS Safety Report 4724856-8 (Version None)
Quarter: 2005Q3

REPORT INFORMATION
  Report Type: 
  Country: None (occurrence: None)
  Receive Date: 20050721
  Receipt Date: 20050707
  Transmission Date: 20060218
  Serious: Yes (Death)
  Sender: FDA-Public Use
  Company Number: WAES 0507USA01146

PATIENT
  Sex: Female

DRUGS (6)
  1. COZAAR [Suspect]
     Indication: HYPERTENSION
     Dosage: 150 MG/DAILY PO
     Route: 048
     Dates: start: 20020630, end: 20030710
  2. BEZATOL SR [Concomitant]
  3. FRANDOL [Concomitant]
  4. LANDEL [Concomitant]
  5. LIPITOR [Concomitant]
  6. NITRODERM [Concomitant]

REACTIONS (1)
  - GASTRIC CANCER [None]
